FAERS Safety Report 9243125 (Version 1)
Quarter: 2013Q2

REPORT INFORMATION
  Report Type: Spontaneous
  Country: US (occurrence: US)
  Receive Date: 20130419
  Receipt Date: 20130419
  Transmission Date: 20140414
  Serious: No
  Sender: FDA-Public Use
  Company Number: US-PFIZER INC-2013122432

PATIENT
  Age: 54 Year
  Sex: Female

DRUGS (3)
  1. VENLAFAXINE HCL [Suspect]
     Indication: ANXIETY
     Dosage: 150 MG, 1X/DAY
     Route: 065
     Dates: start: 201302, end: 20130308
  2. VENLAFAXINE HCL [Suspect]
     Indication: DEPRESSION
  3. ZYRTEC [Concomitant]
     Dosage: UNK
     Route: 065

REACTIONS (6)
  - Decreased appetite [Recovered/Resolved]
  - Anxiety [Recovered/Resolved]
  - Insomnia [Recovered/Resolved]
  - Thinking abnormal [Recovered/Resolved]
  - Disturbance in attention [Recovered/Resolved]
  - Affect lability [Recovered/Resolved]
